FAERS Safety Report 19196973 (Version 1)
Quarter: 2021Q2

REPORT INFORMATION
  Report Type: Spontaneous
  Country: GB (occurrence: GB)
  Receive Date: 20210430
  Receipt Date: 20210430
  Transmission Date: 20210717
  Serious: Yes (Other)
  Sender: FDA-Public Use
  Company Number: GB-JNJFOC-20210456053

PATIENT
  Age: 41 Year
  Sex: Female

DRUGS (3)
  1. REMICADE [Suspect]
     Active Substance: INFLIXIMAB
     Indication: ILL-DEFINED DISORDER
     Route: 042
  2. STELARA [Concomitant]
     Active Substance: USTEKINUMAB
     Indication: CROHN^S DISEASE
  3. STELARA [Concomitant]
     Active Substance: USTEKINUMAB
     Indication: ILL-DEFINED DISORDER

REACTIONS (1)
  - Lupus-like syndrome [Unknown]
